FAERS Safety Report 8013953-X (Version None)
Quarter: 2011Q4

REPORT INFORMATION
  Report Type: 
  Country: None (occurrence: None)
  Receive Date: 20111229
  Receipt Date: 20111226
  Transmission Date: 20120403
  Serious: Yes (Hospitalization)
  Sender: FDA-Public Use
  Company Number: FR-PFIZER INC-2011313747

PATIENT
  Age: 37 Year
  Sex: Male

DRUGS (11)
  1. OMEPRAZOLE [Concomitant]
  2. OFLOXACIN [Suspect]
     Indication: PYREXIA
     Dosage: 200 MG, 2X/DAY
     Route: 042
     Dates: start: 20111031, end: 20111103
  3. VANCOMYCIN HCL [Suspect]
     Indication: PYREXIA
     Dosage: UNK
     Route: 042
     Dates: start: 20111026, end: 20111106
  4. ACICLOVIR [Concomitant]
     Dosage: 600 MG, 3X/DAY
     Dates: start: 20111021, end: 20111121
  5. BACTRIM [Concomitant]
     Dosage: UNK
  6. VORICONAZOLE [Suspect]
     Indication: ASPERGILLOSIS
     Dosage: 260 MG, 2X/DAY
     Route: 042
     Dates: start: 20111031, end: 20111104
  7. TIENAM [Concomitant]
     Dosage: UNK
     Dates: start: 20111029, end: 20111116
  8. FILGRASTIM [Concomitant]
  9. CYTARABINE [Concomitant]
     Dosage: UNK
     Dates: start: 20111014, end: 20111024
  10. MORPHINE [Concomitant]
  11. DAUNORUBICIN [Concomitant]
     Dosage: UNK
     Dates: start: 20111014, end: 20111024

REACTIONS (2)
  - HALLUCINATION [None]
  - CONFUSIONAL STATE [None]
